FAERS Safety Report 7620138-5 (Version None)
Quarter: 2011Q3

REPORT INFORMATION
  Report Type: 
  Country: None (occurrence: None)
  Receive Date: 20110719
  Receipt Date: 20110713
  Transmission Date: 20111222
  Serious: Yes (Other)
  Sender: FDA-Public Use
  Company Number: GB-B.I. PHARMACEUTICALS,INC./RIDGEFIELD-2011-UK-00718UK

PATIENT
  Age: 79 Year
  Sex: Male
  Weight: 78 kg

DRUGS (7)
  1. DABIGATRAN [Suspect]
     Indication: PROPHYLAXIS
     Dosage: 130 MG
     Route: 048
     Dates: start: 20110604, end: 20110613
  2. TERAZOSIN HCL [Concomitant]
     Dosage: 5 MG
  3. CANDESARTAN CILEXETIL [Concomitant]
     Dosage: 2 MG
  4. ACETAMINOPHEN [Concomitant]
     Dosage: 500 MG
  5. SIMVASTATIN [Concomitant]
     Dosage: 10 MG
  6. CODEINE SULFATE [Concomitant]
     Route: 048
  7. TRAMADOL HCL [Concomitant]
     Dosage: 50 MG

REACTIONS (1)
  - DEEP VEIN THROMBOSIS [None]
